FAERS Safety Report 8843314 (Version 1)
Quarter: 2012Q4

REPORT INFORMATION
  Report Type: 
  Country: DK (occurrence: FR)
  Receive Date: 20121016
  Receipt Date: 20121016
  Transmission Date: 20130627
  Serious: Yes (Other)
  Sender: FDA-Public Use
  Company Number: FR-FRI-1000039457

PATIENT
  Sex: Female

DRUGS (1)
  1. ESCITALOPRAM [Suspect]

REACTIONS (1)
  - Haematochezia [Unknown]
